FAERS Safety Report 15838459 (Version 1)
Quarter: 2018Q4

REPORT INFORMATION
  Report Type: Spontaneous
  Country: US (occurrence: US)
  Receive Date: 20181113
  Receipt Date: 20181113
  Transmission Date: 20190205
  Serious: Yes (Life-Threatening, Hospitalization)
  Sender: FDA-Public Use
  Company Number: None

PATIENT
  Age: 53 Year
  Sex: Male

DRUGS (1)
  1. INFLIXIMAB-ABDA [Suspect]
     Active Substance: INFLIXIMAB-ABDA
     Route: 042
     Dates: start: 20181005, end: 20181019

REACTIONS (6)
  - Dyspnoea [None]
  - Hypersensitivity [None]
  - Myalgia [None]
  - Flushing [None]
  - Infusion related reaction [None]
  - Chest pain [None]

NARRATIVE: CASE EVENT DATE: 20181019
